FAERS Safety Report 5074160-6 (Version None)
Quarter: 2006Q3

REPORT INFORMATION
  Report Type: 
  Country: None (occurrence: None)
  Receive Date: 20060803
  Receipt Date: 20060724
  Transmission Date: 20061208
  Serious: Yes (Hospitalization)
  Sender: FDA-Public Use
  Company Number: 2006JP001500

PATIENT
  Age: 72 Year
  Sex: Female

DRUGS (22)
  1. FUNGUARD (MICAFUNGIN)INJECTION [Suspect]
     Indication: RESPIRATORY MONILIASIS
     Dosage: 50 MG, UID/QD, IV DRIP
     Route: 041
     Dates: start: 20060512, end: 20060518
  2. OMEPRAZOLE [Concomitant]
  3. FULCALIQ 2 (AMOXICILLIN TRIHYDRATE) INJECTION [Concomitant]
  4. MINERALIN (MINERALS NOS) INJECTION [Concomitant]
  5. PREDNISOLONE [Concomitant]
  6. PREDNISOLONE [Concomitant]
  7. NORVASC [Concomitant]
  8. CRAVIT (LEVOFLOXACIN) TABLET [Concomitant]
  9. KLARICID (CLARITHROMYCIN) TABLET [Concomitant]
  10. GASTER D ORODISPERSABLE CR TABLET [Concomitant]
  11. BIO THREE POWDER [Concomitant]
  12. CEREKINON (TRIMEBUTINE MALEATE) TABLET [Concomitant]
  13. SOL MEDROL (METHYLPREDNISOLONE, SUCCINATE SODIUM) INJECTION [Concomitant]
  14. MEROPEN (MEROPENEM) INJECTION [Concomitant]
  15. MINOCYCLINE HYDROCHLORIDE (MINOCYCLINE HYDROCHLORIDE) INJECTION [Concomitant]
  16. VENILON (IMMUNOGLOBULIN HUMAN NORMAL) INJECTION [Concomitant]
  17. DORMICUM (MIDAZOLAM) INJECTION [Concomitant]
  18. MUSCULAX (VECURONIUM BROMIDE) INJECTION [Concomitant]
  19. TARGOCID [Concomitant]
  20. NOVOLIN R (INSULIN HUMAN) INJECTION [Concomitant]
  21. ROCEPHIN [Concomitant]
  22. UNASYN S (AMPICILLIN SODIUM, SULBACTAM SODIUM) INJECTION [Concomitant]

REACTIONS (10)
  - BLOOD PRESSURE INCREASED [None]
  - EPISTAXIS [None]
  - HAEMATURIA [None]
  - HAEMORRHAGE SUBCUTANEOUS [None]
  - MOUTH HAEMORRHAGE [None]
  - PALPITATIONS [None]
  - PETECHIAE [None]
  - PLATELET COUNT DECREASED [None]
  - PURPURA [None]
  - URINARY BLADDER HAEMORRHAGE [None]
